FAERS Safety Report 10867310 (Version 1)
Quarter: 2015Q1

REPORT INFORMATION
  Report Type: Spontaneous
  Country: DE (occurrence: DE)
  Receive Date: 20150225
  Receipt Date: 20150225
  Transmission Date: 20150721
  Serious: Yes (Death)
  Sender: FDA-Public Use
  Company Number: PHHY2015DE021762

PATIENT
  Age: 66 Year
  Sex: Male

DRUGS (1)
  1. EVEROLIMUS [Suspect]
     Active Substance: EVEROLIMUS
     Indication: METASTATIC RENAL CELL CARCINOMA
     Route: 065
     Dates: start: 200906

REACTIONS (3)
  - Malignant neoplasm progression [Fatal]
  - Performance status decreased [Fatal]
  - Metastases to liver [Fatal]
